FAERS Safety Report 8758321 (Version 2)
Quarter: 2012Q4

REPORT INFORMATION
  Report Type: Report from Study
  Country: DE (occurrence: DE)
  Receive Date: 20120829
  Receipt Date: 20121210
  Transmission Date: 20130627
  Serious: Yes (Hospitalization)
  Sender: FDA-Public Use
  Company Number: PHHY2012DE072232

PATIENT
  Age: 27 Year
  Sex: Female
  Weight: 59 kg

DRUGS (4)
  1. FTY 720 [Suspect]
     Indication: MULTIPLE SCLEROSIS
     Dosage: 0.5 mg, QD
     Route: 048
     Dates: start: 20111121, end: 20120405
  2. FTY 720 [Suspect]
     Dosage: UNK UKN, UNK
     Dates: start: 20120508
  3. SALOFALK [Concomitant]
     Indication: CROHN^S DISEASE
     Dates: start: 20080801
  4. CETIRIZINE [Concomitant]
     Dates: start: 20070101

REACTIONS (2)
  - Crohn^s disease [Recovered/Resolved]
  - Lymphocyte count decreased [Not Recovered/Not Resolved]
